FAERS Safety Report 4553721-4 (Version None)
Quarter: 2004Q4

REPORT INFORMATION
  Report Type: 
  Country: None (occurrence: None)
  Receive Date: 20041227
  Receipt Date: 20040908
  Transmission Date: 20050328
  Serious: No
  Sender: FDA-Public Use
  Company Number: 04P-163-0272776-00

PATIENT
  Age: 58 Year
  Sex: Female
  Weight: 76.2043 kg

DRUGS (12)
  1. HUMIRA [Suspect]
     Indication: RHEUMATOID ARTHRITIS
     Dosage: SEE IMAGE
     Route: 058
     Dates: start: 20040601, end: 20040701
  2. HUMIRA [Suspect]
     Indication: RHEUMATOID ARTHRITIS
     Dosage: SEE IMAGE
     Route: 058
     Dates: start: 20040701
  3. CELECOXIB [Concomitant]
  4. SULFASALAZINE [Concomitant]
  5. GABAPENTIN [Concomitant]
  6. HYDROXYCHLOROQUINE PHOSPHATE [Concomitant]
  7. METHOTREXATE [Concomitant]
  8. ALPRAZOLAM [Concomitant]
  9. VICODIN [Concomitant]
  10. FOLIC ACID [Concomitant]
  11. ZOLPIDEM TARTRATE [Concomitant]
  12. MULTIVITAMIN [Concomitant]

REACTIONS (2)
  - CONDITION AGGRAVATED [None]
  - HYPOAESTHESIA [None]
